FAERS Safety Report 9092256 (Version 2)
Quarter: 2013Q1

REPORT INFORMATION
  Report Type: Report from Study
  Country: US (occurrence: US)
  Receive Date: 20130201
  Receipt Date: 20130319
  Transmission Date: 20140127
  Serious: Yes (Other)
  Sender: FDA-Public Use
  Company Number: US-ABBOTT-12P-163-1026464-00

PATIENT
  Age: 55 Year
  Sex: Male

DRUGS (3)
  1. HUMIRA [Suspect]
     Indication: RHEUMATOID ARTHRITIS
     Dates: start: 201010, end: 20121207
  2. HUMIRA [Suspect]
     Dates: start: 20121221
  3. INSULIN 70/30 [Concomitant]
     Indication: DIABETES MELLITUS

REACTIONS (4)
  - Diabetic retinopathy [Recovering/Resolving]
  - Malaise [Unknown]
  - Gait disturbance [Not Recovered/Not Resolved]
  - Pain in extremity [Not Recovered/Not Resolved]
